FAERS Safety Report 7392562-X (Version None)
Quarter: 2011Q2

REPORT INFORMATION
  Report Type: 
  Country: None (occurrence: None)
  Receive Date: 20110404
  Receipt Date: 20110321
  Transmission Date: 20111010
  Serious: Yes (Hospitalization, Other)
  Sender: FDA-Public Use
  Company Number: US-EISAI INC-E3810-04555-SPO-US

PATIENT
  Sex: Female
  Weight: 83.99 kg

DRUGS (6)
  1. ACIPHEX [Suspect]
     Route: 048
     Dates: start: 20081001
  2. FOLIC ACID [Concomitant]
     Route: 048
     Dates: start: 20060101
  3. METHOTREXATE [Concomitant]
     Route: 048
     Dates: start: 20060101
  4. REMICADE [Suspect]
     Indication: RHEUMATOID ARTHRITIS
     Dosage: UNKNOWN
     Route: 042
     Dates: start: 20060401
  5. PREMARIN [Concomitant]
     Indication: HORMONE REPLACEMENT THERAPY
     Route: 048
     Dates: start: 19960101
  6. DICLOFENAC SODIUM [Concomitant]
     Indication: INFLAMMATION
     Route: 048
     Dates: start: 20060101

REACTIONS (8)
  - ATRIAL FIBRILLATION [None]
  - MALAISE [None]
  - PALPITATIONS [None]
  - ABDOMINAL PAIN UPPER [None]
  - BLOOD CHOLESTEROL INCREASED [None]
  - NASAL SEPTUM DEVIATION [None]
  - CHOLELITHIASIS [None]
  - HEADACHE [None]
